FAERS Safety Report 8551617-4 (Version None)
Quarter: 2012Q3

REPORT INFORMATION
  Report Type: 
  Country: None (occurrence: None)
  Receive Date: 20120730
  Receipt Date: 20120719
  Transmission Date: 20120928
  Serious: Yes (Hospitalization)
  Sender: FDA-Public Use
  Company Number: AT-PFIZER INC-2012176037

PATIENT
  Age: 59 Year
  Sex: Male
  Weight: 132 kg

DRUGS (8)
  1. TESTOSTERONE [Concomitant]
     Indication: BLOOD FOLLICLE STIMULATING HORMONE DECREASED
  2. TESTOSTERONE [Concomitant]
     Indication: HYPOGONADISM MALE
  3. NOVOTHYRAL [Concomitant]
     Indication: BLOOD THYROID STIMULATING HORMONE DECREASED
     Dosage: UNK
     Dates: start: 19961015
  4. TESTOSTERONE [Concomitant]
     Indication: BLOOD LUTEINISING HORMONE DECREASED
     Dosage: UNK
     Dates: start: 20040514
  5. NOVOTHYRAL [Concomitant]
     Indication: PRIMARY HYPOTHYROIDISM
  6. DOSTINEX [Concomitant]
     Indication: PROLACTINOMA
     Dosage: UNK
     Dates: start: 19961015
  7. CORTISONE [Concomitant]
     Indication: BLOOD CORTICOTROPHIN DECREASED
     Dosage: UNK
     Dates: start: 19961015
  8. GENOTROPIN [Suspect]
     Indication: HYPOPITUITARISM
     Dosage: 0.4 MG/DAY, 7 INJECTIONS/WEEK
     Route: 058
     Dates: start: 20071116

REACTIONS (1)
  - ACCIDENT [None]
